FAERS Safety Report 20826280 (Version 1)
Quarter: 2022Q2

REPORT INFORMATION
  Report Type: Report from Study
  Country: US (occurrence: US)
  Receive Date: 20220513
  Receipt Date: 20220513
  Transmission Date: 20220721
  Serious: Yes (Other)
  Sender: FDA-Public Use
  Company Number: US-PHARMACOVIGILANCE-US-KAD-22-00298

PATIENT
  Age: 59 Year
  Sex: Female

DRUGS (1)
  1. BELUMOSUDIL [Suspect]
     Active Substance: BELUMOSUDIL
     Indication: Product used for unknown indication
     Dosage: 200 MILLIGRAM
     Route: 065
     Dates: start: 20211027

REACTIONS (2)
  - Oedema peripheral [Unknown]
  - Product dose omission issue [Unknown]

NARRATIVE: CASE EVENT DATE: 20220302
